FAERS Safety Report 5179347-X (Version None)
Quarter: 2006Q4

REPORT INFORMATION
  Report Type: 
  Country: None (occurrence: None)
  Receive Date: 20061219
  Receipt Date: 20061214
  Transmission Date: 20070319
  Serious: Yes (Other)
  Sender: FDA-Public Use
  Company Number: GB-GLAXOSMITHKLINE-B0450985A

PATIENT
  Age: 51 Year
  Sex: Male

DRUGS (5)
  1. AMOXICILLIN + CLAVULANATE POTASSIUM [Suspect]
     Indication: DRUG USE FOR UNKNOWN INDICATION
     Dosage: 625MG THREE TIMES PER DAY
     Route: 048
     Dates: start: 20061020
  2. ALLOPURINOL [Concomitant]
     Dosage: 300MG PER DAY
     Route: 048
     Dates: start: 20051111
  3. ATENOLOL [Concomitant]
     Dosage: 25MG PER DAY
     Route: 048
     Dates: start: 20060801
  4. INDOMETHACIN [Concomitant]
     Dosage: 25MG AS REQUIRED
     Route: 048
     Dates: start: 20060206
  5. RAMIPRIL [Concomitant]
     Dosage: 10MG PER DAY
     Route: 048
     Dates: start: 20060801

REACTIONS (2)
  - ARTHRALGIA [None]
  - OEDEMA PERIPHERAL [None]
